FAERS Safety Report 10654238 (Version 1)
Quarter: 2014Q4

REPORT INFORMATION
  Report Type: Spontaneous
  Country: US (occurrence: None)
  Receive Date: 20141215
  Receipt Date: 20141215
  Transmission Date: 20150529
  Serious: No
  Sender: FDA-Public Use
  Company Number: None

PATIENT
  Age: 75 Year
  Sex: Female

DRUGS (5)
  1. ATORAVASTATIN [Concomitant]
     Active Substance: ATORVASTATIN
  2. CA/VIT D [Concomitant]
  3. OMEPRAZOLE. [Concomitant]
     Active Substance: OMEPRAZOLE
  4. AMPYRA [Suspect]
     Active Substance: DALFAMPRIDINE
     Route: 048
     Dates: start: 201006
  5. BACLOFEN. [Concomitant]
     Active Substance: BACLOFEN

REACTIONS (5)
  - Urinary tract infection [None]
  - Vulvovaginal burning sensation [None]
  - Constipation [None]
  - Vaginitis bacterial [None]
  - Vulvovaginal candidiasis [None]

NARRATIVE: CASE EVENT DATE: 20141103
